FAERS Safety Report 6033823-6 (Version None)
Quarter: 2009Q1

REPORT INFORMATION
  Report Type: 
  Country: None (occurrence: None)
  Receive Date: 20090112
  Receipt Date: 20090106
  Transmission Date: 20090719
  Serious: Yes (Life-Threatening, Hospitalization)
  Sender: FDA-Public Use
  Company Number: FR-JNJFOC-20081205488

PATIENT
  Sex: Female

DRUGS (4)
  1. TOPALGIC [Suspect]
     Indication: PAIN
     Route: 048
  2. LASILIX [Concomitant]
     Route: 065
  3. SUCRALFATE [Concomitant]
     Route: 065
  4. LEVOTHYROX [Concomitant]
     Route: 065

REACTIONS (5)
  - COMA [None]
  - MIOSIS [None]
  - OVERDOSE [None]
  - PULMONARY OEDEMA [None]
  - RESPIRATORY DISTRESS [None]
